FAERS Safety Report 13555176 (Version 1)
Quarter: 2017Q2

REPORT INFORMATION
  Report Type: Spontaneous
  Country: JP (occurrence: JP)
  Receive Date: 20170517
  Receipt Date: 20170517
  Transmission Date: 20170830
  Serious: Yes (Other)
  Sender: FDA-Public Use
  Company Number: JP-BAYER-2017-089503

PATIENT
  Sex: Female

DRUGS (3)
  1. YAZ [Suspect]
     Active Substance: DROSPIRENONE\ETHINYL ESTRADIOL
     Indication: ENDOMETRIOSIS
  2. DIENOGEST [Concomitant]
     Active Substance: DIENOGEST
     Route: 048
  3. YAZ [Suspect]
     Active Substance: DROSPIRENONE\ETHINYL ESTRADIOL
     Indication: DYSMENORRHOEA
     Route: 048

REACTIONS (17)
  - Weight increased [None]
  - Nausea [None]
  - Haemoglobin increased [None]
  - Internal haemorrhage [None]
  - Dehydration [None]
  - Headache [None]
  - Jaw fracture [None]
  - Adverse reaction [None]
  - Gastric ulcer [None]
  - Post-traumatic pain [None]
  - Hyperlipidaemia [None]
  - Heat illness [None]
  - Accident [None]
  - Mental disorder [None]
  - Arthralgia [None]
  - Decreased appetite [None]
  - Temporomandibular joint syndrome [None]

NARRATIVE: CASE EVENT DATE: 2015
